FAERS Safety Report 7816858-X (Version None)
Quarter: 2011Q4

REPORT INFORMATION
  Report Type: 
  Country: None (occurrence: None)
  Receive Date: 20111017
  Receipt Date: 20101001
  Transmission Date: 20120403
  Serious: No
  Sender: FDA-Public Use
  Company Number: US-GLAXOSMITHKLINE-A0884500A

PATIENT
  Age: 2 Year
  Sex: Female

DRUGS (2)
  1. NO CONCURRENT MEDICATION [Concomitant]
  2. CEFTIN [Suspect]
     Indication: PRODUCT USED FOR UNKNOWN INDICATION
     Dosage: 8ML UNKNOWN
     Route: 048
     Dates: start: 20100708, end: 20100709

REACTIONS (4)
  - STOMATITIS [None]
  - RASH [None]
  - PRODUCT QUALITY ISSUE [None]
  - DRUG DISPENSING ERROR [None]
